FAERS Safety Report 9792582 (Version 1)
Quarter: 2014Q1

REPORT INFORMATION
  Report Type: Spontaneous
  Country: US (occurrence: US)
  Receive Date: 20140102
  Receipt Date: 20140102
  Transmission Date: 20141002
  Serious: No
  Sender: FDA-Public Use
  Company Number: US-SA-2013SA098943

PATIENT
  Age: 60 Year
  Sex: Female

DRUGS (8)
  1. AUBAGIO [Suspect]
     Indication: MULTIPLE SCLEROSIS
     Route: 048
     Dates: start: 20130906
  2. BACLOFEN [Concomitant]
  3. PAROXETINE [Concomitant]
  4. GABAPENTIN [Concomitant]
  5. FISH OIL [Concomitant]
  6. COQ [Concomitant]
  7. MULTIVITAMINS [Concomitant]
  8. VITAMIN D [Concomitant]

REACTIONS (2)
  - Fatigue [Unknown]
  - Paraesthesia [Unknown]
